FAERS Safety Report 14723992 (Version 1)
Quarter: 2018Q2

REPORT INFORMATION
  Report Type: Spontaneous
  Country: FR (occurrence: FR)
  Receive Date: 20180405
  Receipt Date: 20180405
  Transmission Date: 20180711
  Serious: Yes (Death, Life-Threatening, Hospitalization)
  Sender: FDA-Public Use
  Company Number: FR-SA-2018SA085508

PATIENT
  Age: 39 Year
  Sex: Male
  Weight: 41 kg

DRUGS (3)
  1. FLUOROURACILE [Suspect]
     Active Substance: FLUOROURACIL
     Indication: ADENOCARCINOMA GASTRIC
     Route: 041
     Dates: start: 20180212, end: 20180213
  2. OXALIPLATIN. [Suspect]
     Active Substance: OXALIPLATIN
     Indication: ADENOCARCINOMA GASTRIC
     Dosage: FORM CONCENTRATE FOR SOLUTION
     Route: 041
     Dates: start: 20180212
  3. LEVOFOLINATE [Suspect]
     Active Substance: LEVOLEUCOVORIN CALCIUM
     Indication: ADENOCARCINOMA GASTRIC
     Route: 041
     Dates: start: 20180212

REACTIONS (4)
  - Hyperkalaemia [Fatal]
  - Ejection fraction decreased [Fatal]
  - Hyponatraemia [Fatal]
  - Seizure [Fatal]

NARRATIVE: CASE EVENT DATE: 20180226
